FAERS Safety Report 15813549 (Version 1)
Quarter: 2019Q1

REPORT INFORMATION
  Report Type: Spontaneous
  Country: US (occurrence: US)
  Receive Date: 20190111
  Receipt Date: 20190111
  Transmission Date: 20190417
  Serious: Yes (Other)
  Sender: FDA-Public Use
  Company Number: None

PATIENT
  Age: 10 Year
  Sex: Male
  Weight: 33.75 kg

DRUGS (3)
  1. CETERIZINE [Concomitant]
     Active Substance: CETIRIZINE HYDROCHLORIDE
  2. MONTELUKAST SOD CHEW TABS [Suspect]
     Active Substance: MONTELUKAST SODIUM
     Indication: ASTHMA
     Dosage: ??          QUANTITY:1 TABLET(S);?
     Route: 048
     Dates: start: 20170531, end: 20180923
  3. MONTELUKAST SOD CHEW TABS [Suspect]
     Active Substance: MONTELUKAST SODIUM
     Indication: HYPERSENSITIVITY
     Dosage: ??          QUANTITY:1 TABLET(S);?
     Route: 048
     Dates: start: 20170531, end: 20180923

REACTIONS (9)
  - Dizziness [None]
  - Insomnia [None]
  - Loss of personal independence in daily activities [None]
  - Depression [None]
  - Anxiety [None]
  - Heart rate increased [None]
  - Skin discolouration [None]
  - Emotional disorder [None]
  - Disturbance in attention [None]

NARRATIVE: CASE EVENT DATE: 20180923
